FAERS Safety Report 20678003 (Version 1)
Quarter: 2022Q2

REPORT INFORMATION
  Report Type: Spontaneous
  Country: JP (occurrence: JP)
  Receive Date: 20220406
  Receipt Date: 20220406
  Transmission Date: 20220721
  Serious: No
  Sender: FDA-Public Use
  Company Number: None

PATIENT
  Age: 31 Year
  Sex: Female

DRUGS (3)
  1. IBUPROFEN [Suspect]
     Active Substance: IBUPROFEN
     Indication: Dysmenorrhoea
     Dosage: UNK
     Route: 065
     Dates: start: 2016, end: 2018
  2. ASPIRIN [Suspect]
     Active Substance: ASPIRIN
     Indication: Dysmenorrhoea
     Dosage: UNK
     Route: 065
     Dates: start: 2016, end: 2018
  3. LOXOPROFEN [Suspect]
     Active Substance: LOXOPROFEN
     Indication: Dysmenorrhoea
     Dosage: UNK
     Route: 065
     Dates: start: 2016, end: 2018

REACTIONS (2)
  - Fixed eruption [Recovered/Resolved]
  - Type IV hypersensitivity reaction [Recovered/Resolved]

NARRATIVE: CASE EVENT DATE: 20160401
